FAERS Safety Report 12192138 (Version 2)
Quarter: 2016Q2

REPORT INFORMATION
  Report Type: Spontaneous
  Country: JP (occurrence: JP)
  Receive Date: 20160318
  Receipt Date: 20160428
  Transmission Date: 20160815
  Serious: Yes (Other)
  Sender: FDA-Public Use
  Company Number: JP-GUERBET LLC-1049310

PATIENT
  Age: 27 Year
  Sex: Female

DRUGS (1)
  1. LIPIODOL [Suspect]
     Active Substance: ETHIODIZED OIL
     Indication: HYSTEROSALPINGOGRAM
     Route: 015
     Dates: start: 20141228, end: 20141228

REACTIONS (4)
  - Maternal exposure before pregnancy [Recovered/Resolved]
  - Hypothyroidism [Recovered/Resolved]
  - Caesarean section [Recovered/Resolved]
  - Polyhydramnios [Recovered/Resolved]
